FAERS Safety Report 6049726-7 (Version None)
Quarter: 2009Q1

REPORT INFORMATION
  Report Type: 
  Country: None (occurrence: None)
  Receive Date: 20090121
  Receipt Date: 20080109
  Transmission Date: 20090719
  Serious: No
  Sender: FDA-Public Use
  Company Number: HQWYE377528SEP07

PATIENT
  Age: 74 Year
  Sex: Female
  Weight: 51.3 kg

DRUGS (9)
  1. PREMPRO [Suspect]
     Indication: OSTEOPOROSIS
     Dosage: 0.625MG/ ?MG DAILY, ORAL
     Route: 048
  2. PREMARIN [Suspect]
     Dosage: INCREASED TO 1.25MG ; 0.625MG FOR 10YEARS, ORAL
     Dates: start: 20000101, end: 20030101
  3. PROVERA [Suspect]
  4. ZETIA [Concomitant]
  5. FOSAMAX [Concomitant]
  6. CALCIUM (CALCIUM) [Concomitant]
  7. NORVASC [Concomitant]
  8. LIPITOR [Concomitant]
  9. HYDROXYZINE [Concomitant]

REACTIONS (7)
  - ALOPECIA [None]
  - DRUG WITHDRAWAL SYNDROME [None]
  - FATIGUE [None]
  - NAUSEA [None]
  - VOMITING [None]
  - VULVOVAGINAL CANDIDIASIS [None]
  - VULVOVAGINAL DRYNESS [None]
